FAERS Safety Report 12622123 (Version 1)
Quarter: 2016Q3

REPORT INFORMATION
  Report Type: Spontaneous
  Country: US (occurrence: US)
  Receive Date: 20160804
  Receipt Date: 20160804
  Transmission Date: 20161109
  Serious: No
  Sender: FDA-Public Use
  Company Number: US-BEH-2016071842

PATIENT
  Age: 45 Year
  Sex: Male
  Weight: 97.51 kg

DRUGS (23)
  1. ASPIRIN. [Concomitant]
     Active Substance: ASPIRIN
  2. PREDNISONE. [Concomitant]
     Active Substance: PREDNISONE
  3. VALGANCICLOVIR. [Concomitant]
     Active Substance: VALGANCICLOVIR
  4. LANTUS [Concomitant]
     Active Substance: INSULIN GLARGINE
  5. SODIUM CHLORIDE. [Concomitant]
     Active Substance: SODIUM CHLORIDE
  6. MYFORTIC [Concomitant]
     Active Substance: MYCOPHENOLATE SODIUM
  7. BUPROPION. [Concomitant]
     Active Substance: BUPROPION
  8. LMX                                /00033401/ [Concomitant]
  9. LYRICA [Concomitant]
     Active Substance: PREGABALIN
  10. ZEMAIRA [Suspect]
     Active Substance: .ALPHA.1-PROTEINASE INHIBITOR HUMAN
     Indication: ALPHA-1 ANTI-TRYPSIN DEFICIENCY
     Dosage: 60 MG/KG, QW
     Route: 042
  11. METFORMIN [Concomitant]
     Active Substance: METFORMIN HYDROCHLORIDE
  12. CALCIUM D                          /00944201/ [Concomitant]
     Active Substance: CALCIUM CARBONATE\CHOLECALCIFEROL
  13. OMEPRAZOLE. [Concomitant]
     Active Substance: OMEPRAZOLE
  14. DIPHENHYDRAMINE. [Concomitant]
     Active Substance: DIPHENHYDRAMINE
  15. ACETAMINOPHEN. [Concomitant]
     Active Substance: ACETAMINOPHEN
  16. MULTIVITAMIN                       /00097801/ [Concomitant]
     Active Substance: VITAMINS
  17. TACROLIMUS. [Concomitant]
     Active Substance: TACROLIMUS
  18. INFLUENZA VIRUS VACCINE [Concomitant]
     Active Substance: INFLUENZA VIRUS VACCINE
  19. HEPARIN [Concomitant]
     Active Substance: HEPARIN SODIUM
  20. EPIPEN [Concomitant]
     Active Substance: EPINEPHRINE
  21. NOXAFIL [Concomitant]
     Active Substance: POSACONAZOLE
  22. NOVOLOG [Concomitant]
     Active Substance: INSULIN ASPART
  23. METOPROLOL. [Concomitant]
     Active Substance: METOPROLOL

REACTIONS (4)
  - Vomiting [Unknown]
  - Cough [Unknown]
  - Nausea [Unknown]
  - Body temperature increased [Unknown]

NARRATIVE: CASE EVENT DATE: 20160321
